FAERS Safety Report 9337484 (Version 9)
Quarter: 2013Q3

REPORT INFORMATION
  Report Type: Spontaneous
  Country: CO (occurrence: CO)
  Receive Date: 20130607
  Receipt Date: 20130820
  Transmission Date: 20140515
  Serious: Yes (Other)
  Sender: FDA-Public Use
  Company Number: CO-VERTEX PHARMACEUTICALS INC-2013-006856

PATIENT
  Age: 62 Year
  Sex: Female
  Weight: 61 kg

DRUGS (7)
  1. INCIVO [Suspect]
     Indication: HEPATITIS C
     Dosage: 750 MG, TID
     Route: 048
     Dates: start: 20130531
  2. INCIVO [Suspect]
     Dosage: 1125 MG, BID
     Route: 048
     Dates: start: 20130615
  3. INTERFERON [Concomitant]
     Indication: HEPATITIS C
     Dosage: DOSAGE FORM: AMP SC.
     Route: 058
     Dates: start: 20130531
  4. INTERFERON [Concomitant]
     Dosage: 60 ?G, QW, AMP,SC
     Route: 058
  5. RIBAVIRIN [Concomitant]
     Indication: HEPATITIS C
     Dosage: DOSAGE FORM: TABLET
     Route: 048
     Dates: start: 20130531
  6. RIBAVIRIN [Concomitant]
     Dosage: 200 MG, QID
     Route: 048
  7. RIBAVIRIN [Concomitant]
     Dosage: 200 MG, TID
     Route: 048

REACTIONS (20)
  - Erythema [Recovered/Resolved]
  - Haemorrhoids [Unknown]
  - Rectal haemorrhage [Recovered/Resolved]
  - Thrombocytopenia [Unknown]
  - Neutropenia [Unknown]
  - Asthenia [Not Recovered/Not Resolved]
  - Depressed mood [Not Recovered/Not Resolved]
  - Decreased appetite [Not Recovered/Not Resolved]
  - Malaise [Not Recovered/Not Resolved]
  - Headache [Unknown]
  - Abdominal pain [Unknown]
  - Leukopenia [Unknown]
  - Diarrhoea [Not Recovered/Not Resolved]
  - Vomiting [Not Recovered/Not Resolved]
  - Pruritus [Not Recovered/Not Resolved]
  - Proctalgia [Recovered/Resolved]
  - Nausea [Not Recovered/Not Resolved]
  - Hyperuricaemia [Unknown]
  - Blood thyroid stimulating hormone increased [Unknown]
  - Anaemia [Unknown]
